FAERS Safety Report 11288085 (Version 3)
Quarter: 2017Q2

REPORT INFORMATION
  Report Type: Spontaneous
  Country: US (occurrence: US)
  Receive Date: 20150721
  Receipt Date: 20170420
  Transmission Date: 20170829
  Serious: Yes (Hospitalization, Other)
  Sender: FDA-Public Use
  Company Number: US-BEH-2015052496

PATIENT
  Age: 57 Year
  Sex: Male

DRUGS (1)
  1. PRIVIGEN [Suspect]
     Active Substance: HUMAN IMMUNOGLOBULIN G
     Indication: MILLER FISHER SYNDROME
     Dosage: 1000 MG/KG, QD
     Route: 042

REACTIONS (8)
  - Pigment nephropathy [Recovered/Resolved]
  - Haemolysis [Recovered/Resolved]
  - Anuria [Recovered/Resolved]
  - Coombs positive haemolytic anaemia [Recovered/Resolved]
  - Fatigue [Recovered/Resolved]
  - Chromaturia [Recovered/Resolved]
  - Tonic clonic movements [Recovered/Resolved]
  - Jaundice [Recovered/Resolved]
